FAERS Safety Report 11381658 (Version 1)
Quarter: 2015Q3

REPORT INFORMATION
  Report Type: Spontaneous
  Country: US (occurrence: US)
  Receive Date: 20150814
  Receipt Date: 20150814
  Transmission Date: 20151125
  Serious: No
  Sender: FDA-Public Use
  Company Number: US-GALDERMA-US14003548

PATIENT
  Sex: Female

DRUGS (2)
  1. ADAPALENE GEL, 0.3% [Suspect]
     Active Substance: ADAPALENE
     Indication: ACNE
     Route: 061
     Dates: start: 201407
  2. ADAPALENE GEL, 0.3% [Suspect]
     Active Substance: ADAPALENE
     Route: 061
     Dates: start: 20140807, end: 20140807

REACTIONS (9)
  - Rash erythematous [Recovered/Resolved]
  - Swelling face [Recovered/Resolved]
  - Pain of skin [Recovered/Resolved]
  - Dermatitis allergic [Recovered/Resolved]
  - Blister [Recovered/Resolved]
  - Pruritus [Recovered/Resolved]
  - Eyelid oedema [Recovered/Resolved]
  - Rash [Recovered/Resolved]
  - Skin warm [Recovered/Resolved]

NARRATIVE: CASE EVENT DATE: 2014
